FAERS Safety Report 7090722-9 (Version None)
Quarter: 2010Q4

REPORT INFORMATION
  Report Type: 
  Country: None (occurrence: None)
  Receive Date: 20101109
  Receipt Date: 20101029
  Transmission Date: 20110411
  Serious: Yes (Hospitalization)
  Sender: FDA-Public Use
  Company Number: ES-NOVOPROD-316517

PATIENT
  Sex: Male
  Weight: 119.2 kg

DRUGS (13)
  1. IDEG FLEXPEN [Suspect]
     Indication: TYPE 2 DIABETES MELLITUS
     Dosage: 158 IU, QD
     Route: 058
     Dates: start: 20100927
  2. IDEG FLEXPEN [Suspect]
     Dosage: 158 UNK, UNK
     Route: 058
     Dates: start: 20091001, end: 20100926
  3. NOVORAPID FLEXPEN [Suspect]
     Indication: TYPE 2 DIABETES MELLITUS
     Dosage: 134 IU, QD
     Route: 058
     Dates: start: 20100927
  4. NOVORAPID FLEXPEN [Suspect]
     Dosage: 136 UNK, UNK
     Route: 058
     Dates: start: 20091001, end: 20100926
  5. METFORMIN HCL [Concomitant]
     Dosage: 850 MG, BID
     Route: 048
     Dates: start: 20070516
  6. KARVEZIDE [Concomitant]
     Dosage: 1 UNK, QD
     Route: 048
     Dates: start: 20070813
  7. ASPIRIN [Concomitant]
     Dosage: 100 MG, QD
     Route: 048
     Dates: start: 20081227
  8. ADOLONTA [Concomitant]
     Indication: OSTEOARTHRITIS
     Dosage: 100 MG, QD
     Route: 048
     Dates: start: 20041001
  9. TORASEMIDE [Concomitant]
     Dosage: 1-0-0
  10. OMNIC [Concomitant]
     Dosage: 0.4
  11. TEVETENS PLUS [Concomitant]
     Dosage: 1-0-0
  12. DEXKETOPROFEN [Concomitant]
     Dosage: 1-1-1
  13. ADALIMUMAB [Suspect]
     Dosage: ONE EVERY 15 DAYS

REACTIONS (1)
  - CARDIAC FAILURE [None]
